FAERS Safety Report 9341498 (Version 1)
Quarter: 2013Q2

REPORT INFORMATION
  Report Type: Spontaneous
  Country: US (occurrence: US)
  Receive Date: 20130611
  Receipt Date: 20130611
  Transmission Date: 20140414
  Serious: No
  Sender: FDA-Public Use
  Company Number: US-TEVA-410901USA

PATIENT
  Age: 53 Year
  Sex: Female
  Weight: 47.67 kg

DRUGS (5)
  1. PROAIR HFA [Suspect]
     Indication: BRONCHOSPASM
     Route: 055
  2. SPIRIVA [Concomitant]
     Indication: CHRONIC OBSTRUCTIVE PULMONARY DISEASE
     Dosage: 18 MICROGRAM DAILY;
     Route: 055
  3. CLONAZEPAM [Concomitant]
     Indication: ANXIETY
     Dosage: 2.5 TABS DAILY
     Route: 048
  4. STEROID INHALER [Concomitant]
  5. SPYSIS [Concomitant]
     Dosage: BID

REACTIONS (1)
  - Migraine [Not Recovered/Not Resolved]
